FAERS Safety Report 15736884 (Version 1)
Quarter: 2018Q4

REPORT INFORMATION
  Report Type: Spontaneous
  Country: GB (occurrence: GB)
  Receive Date: 20181218
  Receipt Date: 20181218
  Transmission Date: 20190205
  Serious: Yes (Other)
  Sender: FDA-Public Use
  Company Number: GB-IMPAX LABORATORIES, LLC-2018-IPXL-04066

PATIENT
  Age: 48 Year
  Sex: Female

DRUGS (2)
  1. CHLOROQUINE PHOSPHATE. [Suspect]
     Active Substance: CHLOROQUINE PHOSPHATE
     Indication: CUTANEOUS LUPUS ERYTHEMATOSUS
     Dosage: UNK
     Route: 065
  2. MEPACRINE [Suspect]
     Active Substance: QUINACRINE
     Indication: CUTANEOUS LUPUS ERYTHEMATOSUS
     Dosage: UNK
     Route: 065

REACTIONS (3)
  - Myopathy [Recovered/Resolved]
  - Toxicity to various agents [Recovered/Resolved]
  - Demyelinating polyneuropathy [Recovered/Resolved]
